FAERS Safety Report 9985968 (Version 1)
Quarter: 2014Q1

REPORT INFORMATION
  Report Type: Report from Study
  Country: US (occurrence: US)
  Receive Date: 20140307
  Receipt Date: 20140307
  Transmission Date: 20141002
  Serious: No
  Sender: FDA-Public Use
  Company Number: US-ABBVIE-13P-163-1088641-00

PATIENT
  Age: 67 Year
  Sex: Male

DRUGS (6)
  1. HUMIRA [Suspect]
     Indication: COLITIS ULCERATIVE
     Dosage: WEEKLY
     Dates: start: 20130103
  2. ZOCOR [Concomitant]
     Indication: BLOOD CHOLESTEROL
     Route: 048
  3. IMITREX [Concomitant]
     Indication: MIGRAINE
     Route: 048
  4. ADVAIR [Concomitant]
     Indication: ASTHMA
     Dosage: ONE PULL
  5. BABY ASPIRIN [Concomitant]
     Indication: CARDIAC DISORDER
     Dosage: DAILY
     Route: 048
  6. METHOTREXATE [Concomitant]
     Indication: PRODUCT USED FOR UNKNOWN INDICATION
     Route: 048
     Dates: start: 201301

REACTIONS (1)
  - Injection site erythema [Recovering/Resolving]
